FAERS Safety Report 4896379-7 (Version None)
Quarter: 2006Q1

REPORT INFORMATION
  Report Type: 
  Country: None (occurrence: None)
  Receive Date: 20060131
  Receipt Date: 20060119
  Transmission Date: 20060701
  Serious: Yes (Hospitalization)
  Sender: FDA-Public Use
  Company Number: PHRM2006FR00622

PATIENT
  Age: 80 Year
  Sex: Female

DRUGS (3)
  1. SINEMET [Suspect]
     Dosage: 50/200 MG TID
     Route: 048
  2. GUTRON [Concomitant]
     Route: 048
  3. EXELON [Suspect]
     Indication: DEMENTIA
     Dosage: 6 MG, BID
     Route: 048

REACTIONS (4)
  - BRADYCARDIA [None]
  - DEPRESSED LEVEL OF CONSCIOUSNESS [None]
  - DRUG INTERACTION [None]
  - ORTHOSTATIC HYPOTENSION [None]
